FAERS Safety Report 7399859-8 (Version None)
Quarter: 2011Q2

REPORT INFORMATION
  Report Type: 
  Country: None (occurrence: None)
  Receive Date: 20110405
  Receipt Date: 20110405
  Transmission Date: 20111010
  Serious: No
  Sender: FDA-Public Use
  Company Number: None

PATIENT
  Age: 75 Year
  Sex: Male
  Weight: 122.5 kg

DRUGS (1)
  1. IMMUNE GLOBULIN NOS [Suspect]
     Indication: DEMYELINATING POLYNEUROPATHY
     Dosage: 48 GM EVERY DAY IV
     Route: 042
     Dates: start: 20101022, end: 20101026

REACTIONS (6)
  - FALL [None]
  - RENAL IMPAIRMENT [None]
  - HYPOAESTHESIA [None]
  - BLOOD CREATININE INCREASED [None]
  - BLOOD UREA INCREASED [None]
  - ASTHENIA [None]
